FAERS Safety Report 19734379 (Version 1)
Quarter: 2021Q3

REPORT INFORMATION
  Report Type: Spontaneous
  Country: FR (occurrence: FR)
  Receive Date: 20210823
  Receipt Date: 20210823
  Transmission Date: 20211014
  Serious: Yes (Life-Threatening, Other)
  Sender: FDA-Public Use
  Company Number: FR-MYLANLABS-2021M1053755

PATIENT
  Age: 57 Year
  Sex: Female
  Weight: 51 kg

DRUGS (14)
  1. THERALENE [Suspect]
     Active Substance: TRIMEPRAZINE
     Indication: PERSONALITY DISORDER
     Dosage: 5 MILLIGRAM, QD
     Route: 048
     Dates: end: 20210212
  2. LOXAPAC                            /00401801/ [Suspect]
     Active Substance: LOXAPINE
     Indication: PERSONALITY DISORDER
     Dosage: 3 DOSAGE FORM, QD
     Route: 048
     Dates: end: 20210212
  3. TRANXENE [Suspect]
     Active Substance: CLORAZEPATE DIPOTASSIUM
     Indication: PERSONALITY DISORDER
     Dosage: 4 DOSAGE FORM, QD
     Route: 048
     Dates: end: 20210212
  4. DIFFU K [Suspect]
     Active Substance: POTASSIUM CHLORIDE
     Indication: PRODUCT USED FOR UNKNOWN INDICATION
     Dosage: 1 DOSAGE FORM, QD
     Route: 048
     Dates: end: 20210212
  5. PREDNISONE. [Suspect]
     Active Substance: PREDNISONE
     Indication: ASTHMA
     Dosage: 4 MILLIGRAM, QD
     Route: 048
     Dates: start: 20210210, end: 20210212
  6. BECLOSPRAY [Suspect]
     Active Substance: BECLOMETHASONE DIPROPIONATE
     Indication: ASTHMA
     Dosage: 4 DOSAGE FORM, QD
     Route: 002
     Dates: start: 2019, end: 20210212
  7. CALCIDOSE VITAMINE D [Suspect]
     Active Substance: CALCIUM\CHOLECALCIFEROL
     Indication: PRODUCT USED FOR UNKNOWN INDICATION
     Dosage: 1 DOSAGE FORM, QD
     Route: 048
     Dates: end: 20210212
  8. NUCALA [Concomitant]
     Active Substance: MEPOLIZUMAB
     Dosage: UNK
  9. ZOPICLONE MYLAN [Suspect]
     Active Substance: ZOPICLONE
     Indication: INSOMNIA
     Dosage: 1 DOSAGE FORM, QD
     Route: 048
     Dates: end: 20210212
  10. FLUOXETINE [Suspect]
     Active Substance: FLUOXETINE HYDROCHLORIDE
     Indication: DEPRESSION
     Dosage: 1 DOSAGE FORM, QD
     Route: 048
     Dates: end: 20210212
  11. COMIRNATY [Suspect]
     Active Substance: TOZINAMERAN
     Indication: COVID-19 IMMUNISATION
     Dosage: 1 DOSAGE FORM, TOTAL
     Route: 030
     Dates: start: 20210211, end: 20210211
  12. CLOMIPRAMINE [Suspect]
     Active Substance: CLOMIPRAMINE
     Indication: PERSONALITY DISORDER
     Dosage: 2 DOSAGE FORM, QD
     Route: 048
     Dates: end: 20210212
  13. FORMOTEROL FUMARATE DIHYDRATE [Suspect]
     Active Substance: FORMOTEROL FUMARATE DIHYDRATE
     Indication: ASTHMA
     Dosage: 2 DOSAGE FORM, QD
     Route: 002
     Dates: start: 2019, end: 20210212
  14. MOVICOL [Suspect]
     Active Substance: POLYETHYLENE GLYCOL 3350\POTASSIUM CHLORIDE\SODIUM BICARBONATE\SODIUM CHLORIDE
     Indication: PRODUCT USED FOR UNKNOWN INDICATION
     Dosage: 4 DOSAGE FORM, QD
     Route: 048
     Dates: end: 20210112

REACTIONS (4)
  - Rebound effect [Recovered/Resolved]
  - Bronchospasm [Recovered/Resolved]
  - Pneumonia aspiration [Recovered/Resolved]
  - Cardio-respiratory arrest [Recovered/Resolved]

NARRATIVE: CASE EVENT DATE: 20210211
